FAERS Safety Report 5867115-2 (Version None)
Quarter: 2008Q3

REPORT INFORMATION
  Report Type: 
  Country: None (occurrence: None)
  Receive Date: 20080828
  Receipt Date: 20080828
  Transmission Date: 20090109
  Serious: No
  Sender: FDA-Public Use
  Company Number: None

PATIENT
  Age: 66 Year
  Sex: Male
  Weight: 80.7 kg

DRUGS (1)
  1. VARENICLINE [Suspect]
     Indication: SMOKING CESSATION THERAPY
     Dosage: 0.5 MG EVERY DAY PO
     Route: 048
     Dates: start: 20080529, end: 20080709

REACTIONS (8)
  - ABASIA [None]
  - DIZZINESS [None]
  - HYPOAESTHESIA [None]
  - ORTHOSTATIC HYPOTENSION [None]
  - PARAESTHESIA [None]
  - PYREXIA [None]
  - TRANSIENT ISCHAEMIC ATTACK [None]
  - TREMOR [None]
